FAERS Safety Report 8496078-9 (Version None)
Quarter: 2012Q3

REPORT INFORMATION
  Report Type: 
  Country: None (occurrence: None)
  Receive Date: 20120709
  Receipt Date: 20120626
  Transmission Date: 20120928
  Serious: Yes (Other)
  Sender: FDA-Public Use
  Company Number: GB-JNJFOC-20120702106

PATIENT

DRUGS (2)
  1. ITRACONAZOLE [Suspect]
     Indication: ASTHMA
     Route: 065
  2. ITRACONAZOLE [Suspect]
     Indication: BRONCHOPULMONARY ASPERGILLOSIS ALLERGIC
     Route: 065

REACTIONS (7)
  - ADRENAL SUPPRESSION [None]
  - DRUG INEFFECTIVE [None]
  - VOMITING [None]
  - NAUSEA [None]
  - DRUG RESISTANCE [None]
  - HEPATOTOXICITY [None]
  - NEUROPATHY PERIPHERAL [None]
